FAERS Safety Report 18742187 (Version 2)
Quarter: 2022Q3

REPORT INFORMATION
  Report Type: Spontaneous
  Country: FR (occurrence: FR)
  Receive Date: 20210114
  Receipt Date: 20220805
  Transmission Date: 20221026
  Serious: Yes (Other)
  Sender: FDA-Public Use
  Company Number: FR-PFIZER INC-2021016430

PATIENT
  Age: 68 Year
  Sex: Female
  Weight: 72 kg

DRUGS (7)
  1. VYNDAQEL [Suspect]
     Active Substance: TAFAMIDIS MEGLUMINE
     Dosage: 20 MG, DAILY
     Dates: end: 20201208
  2. ALDACTONE [Concomitant]
     Active Substance: SPIRONOLACTONE
  3. FUROSEMIDE [Concomitant]
     Active Substance: FUROSEMIDE
  4. BISOPROLOL [Concomitant]
     Active Substance: BISOPROLOL
  5. XARELTO [Concomitant]
     Active Substance: RIVAROXABAN
  6. LEVOTHYROXINE [Concomitant]
     Active Substance: LEVOTHYROXINE
  7. CANDESARTAN CILEXETIL [Concomitant]
     Active Substance: CANDESARTAN CILEXETIL

REACTIONS (5)
  - Cardiac failure chronic [Unknown]
  - Disease progression [Unknown]
  - N-terminal prohormone brain natriuretic peptide increased [Unknown]
  - Troponin I increased [Unknown]
  - Weight decreased [Unknown]

NARRATIVE: CASE EVENT DATE: 20201206
